FAERS Safety Report 14545531 (Version 1)
Quarter: 2018Q1

REPORT INFORMATION
  Report Type: Spontaneous
  Country: US (occurrence: US)
  Receive Date: 20180219
  Receipt Date: 20180219
  Transmission Date: 20180509
  Serious: No
  Sender: FDA-Public Use
  Company Number: US-ASTRAZENECA-2018SE20600

PATIENT
  Sex: Female

DRUGS (2)
  1. NEXIUM 24HR [Suspect]
     Active Substance: ESOMEPRAZOLE MAGNESIUM
     Dosage: 44.6 MG, UNK (2 OF THE 22.3)
     Route: 048
     Dates: start: 2017
  2. NEXIUM 24HR [Suspect]
     Active Substance: ESOMEPRAZOLE MAGNESIUM
     Dosage: 22.3 MG, UNK
     Route: 048
     Dates: start: 2017

REACTIONS (4)
  - Osteoporosis [Unknown]
  - Intentional product misuse [Unknown]
  - Cough [Unknown]
  - Dyspnoea [Unknown]
